FAERS Safety Report 7937994-3 (Version None)
Quarter: 2011Q4

REPORT INFORMATION
  Report Type: 
  Country: None (occurrence: None)
  Receive Date: 20111123
  Receipt Date: 20111116
  Transmission Date: 20120403
  Serious: Yes (Hospitalization, Other)
  Sender: FDA-Public Use
  Company Number: DE-ACTELION-A-US2011-57244

PATIENT

DRUGS (8)
  1. MARCUMAR [Concomitant]
  2. PENTAERYTHRITOL TETRANITRATE [Concomitant]
  3. ESIDRIX [Concomitant]
  4. TRACLEER [Concomitant]
     Indication: PULMONARY ARTERIAL HYPERTENSION
     Dosage: UNK
     Route: 048
     Dates: start: 20080101
  5. VENTAVIS [Suspect]
     Indication: PULMONARY ARTERIAL HYPERTENSION
     Dosage: UNK
     Route: 055
     Dates: start: 20080912
  6. UNASYN [Concomitant]
  7. SILDENAFIL [Concomitant]
  8. SITAXENTAN [Concomitant]

REACTIONS (8)
  - PYREXIA [None]
  - ATRIOVENTRICULAR BLOCK FIRST DEGREE [None]
  - RENAL FAILURE ACUTE [None]
  - ARTHRALGIA [None]
  - ATRIAL FLUTTER [None]
  - PNEUMONIA [None]
  - BUNDLE BRANCH BLOCK RIGHT [None]
  - PULMONARY ARTERY THROMBOSIS [None]
